FAERS Safety Report 4486474-9 (Version None)
Quarter: 2004Q4

REPORT INFORMATION
  Report Type: 
  Country: None (occurrence: None)
  Receive Date: 20041026
  Receipt Date: 20041026
  Transmission Date: 20050328
  Serious: Yes (Hospitalization)
  Sender: FDA-Public Use
  Company Number: None

PATIENT
  Age: 78 Year
  Sex: Male

DRUGS (8)
  1. METOPROLOL SUCCINATE [Suspect]
     Indication: HYPERTENSION
     Dosage: 25 MG   BID   ORAL
     Route: 048
  2. DILTIAZEM [Suspect]
     Dosage: 180 MG   QD   ORAL
     Route: 048
  3. HYDROCHLOROTHIAZIDE -HYDRODIURIL- [Concomitant]
  4. CARDIZEM [Concomitant]
  5. LOPRESSOR [Concomitant]
  6. FLOMAX [Concomitant]
  7. CELEBREX [Concomitant]
  8. AMBIEN [Concomitant]

REACTIONS (2)
  - DIZZINESS [None]
  - SYNCOPE [None]
